FAERS Safety Report 23044233 (Version 1)
Quarter: 2023Q4

REPORT INFORMATION
  Report Type: Report from Study
  Country: ES (occurrence: ES)
  Receive Date: 20231009
  Receipt Date: 20231009
  Transmission Date: 20240110
  Serious: Yes (Hospitalization)
  Sender: FDA-Public Use
  Company Number: None

PATIENT
  Age: 74 Year
  Sex: Male

DRUGS (6)
  1. CLOPIDOGREL [Interacting]
     Active Substance: CLOPIDOGREL BISULFATE
     Indication: Thrombosis prophylaxis
     Dosage: CLOPIDOGREL (7300A)
     Dates: start: 20230422, end: 20230505
  2. ASPIRIN [Interacting]
     Active Substance: ASPIRIN
     Indication: Thrombosis prophylaxis
     Dosage: EFG, 30 TABLETS (POLYPROPYLENE - ALUMINUM)
     Dates: start: 20230422, end: 20230505
  3. OMEPRAZOLE [Concomitant]
     Active Substance: OMEPRAZOLE
     Indication: Gastritis prophylaxis
     Dosage: OMEPRAZOL (2141A)
     Dates: start: 200211
  4. CELLCEPT [Concomitant]
     Active Substance: MYCOPHENOLATE MOFETIL
     Indication: Prophylaxis against transplant rejection
     Dosage: 50 TABLETS
     Dates: start: 20030616
  5. URSOBILANE [Concomitant]
     Indication: Cholelithiasis
     Dosage: 60 CAPSULES
     Dates: start: 20200211
  6. FORMODUAL NEXTHALER [Concomitant]
     Indication: Bronchospasm
     Dosage: FORM STRENGTH : 100 MICROGRAMS/6 MICROGRAMS, 1 INHALER OF 120 DOSES
     Dates: start: 20170516

REACTIONS (2)
  - Haematochezia [Recovered/Resolved]
  - Drug interaction [Unknown]

NARRATIVE: CASE EVENT DATE: 20230505
